FAERS Safety Report 6848188-7 (Version None)
Quarter: 2010Q3

REPORT INFORMATION
  Report Type: 
  Country: None (occurrence: None)
  Receive Date: 20100716
  Receipt Date: 20100709
  Transmission Date: 20110219
  Serious: Yes (Death)
  Sender: FDA-Public Use
  Company Number: B0659261A

PATIENT
  Sex: Male
  Weight: 81 kg

DRUGS (4)
  1. ZYBAN [Suspect]
     Route: 065
     Dates: start: 20060519, end: 20060822
  2. NICORETTE [Concomitant]
     Route: 065
     Dates: start: 20060519
  3. KARDEGIC [Concomitant]
     Dosage: 75MG PER DAY
     Dates: start: 20060529
  4. METEOSPASMYL [Concomitant]
     Dosage: 1UNIT THREE TIMES PER DAY
     Route: 048
     Dates: start: 20060620

REACTIONS (8)
  - ASTHENIA [None]
  - C-REACTIVE PROTEIN INCREASED [None]
  - INCORRECT DRUG ADMINISTRATION DURATION [None]
  - INFLUENZA [None]
  - INSOMNIA [None]
  - MYOCARDIAL INFARCTION [None]
  - PYREXIA [None]
  - SUDDEN DEATH [None]
